FAERS Safety Report 6922565-8 (Version None)
Quarter: 2010Q3

REPORT INFORMATION
  Report Type: 
  Country: None (occurrence: None)
  Receive Date: 20100813
  Receipt Date: 20100805
  Transmission Date: 20110219
  Serious: Yes (Hospitalization)
  Sender: FDA-Public Use
  Company Number: ZA-SANOFI-AVENTIS-2010SA046113

PATIENT
  Age: 14 Year
  Sex: Female

DRUGS (1)
  1. STILNOX MR [Suspect]
     Indication: ANXIETY
     Route: 048

REACTIONS (2)
  - EXTRAPYRAMIDAL DISORDER [None]
  - OFF LABEL USE [None]
